FAERS Safety Report 5414353-9 (Version None)
Quarter: 2007Q3

REPORT INFORMATION
  Report Type: 
  Country: None (occurrence: None)
  Receive Date: 20070713
  Receipt Date: 20061206
  Transmission Date: 20080115
  Serious: Yes (Hospitalization, Other)
  Sender: FDA-Public Use
  Company Number: US-JNJFOC-20060806798

PATIENT
  Age: 35 Year
  Sex: Female
  Weight: 56.6996 kg

DRUGS (1)
  1. ORTHO EVRA [Suspect]
     Indication: POLYCYSTIC OVARIES
     Dosage: TRANSDERMAL
     Route: 062
     Dates: start: 20021101, end: 20041001

REACTIONS (2)
  - CAROTID ARTERY OCCLUSION [None]
  - CEREBROVASCULAR ACCIDENT [None]
